FAERS Safety Report 9297065 (Version 1)
Quarter: 2013Q2

REPORT INFORMATION
  Report Type: Spontaneous
  Country: IT (occurrence: IT)
  Receive Date: 20130519
  Receipt Date: 20130519
  Transmission Date: 20140414
  Serious: Yes (Other)
  Sender: FDA-Public Use
  Company Number: IT-MYLANLABS-2013S1010104

PATIENT
  Age: 70 Year
  Sex: Male
  Weight: 90 kg

DRUGS (2)
  1. CARVEDILOL [Suspect]
     Indication: ESSENTIAL HYPERTENSION
     Route: 048
     Dates: start: 20090901, end: 20121201
  2. FELODIPINE [Suspect]
     Indication: ESSENTIAL HYPERTENSION
     Route: 048
     Dates: start: 20090901, end: 20121201

REACTIONS (3)
  - Drug ineffective [Recovering/Resolving]
  - Middle insomnia [Recovering/Resolving]
  - Tremor [Recovering/Resolving]
